FAERS Safety Report 5578724-2 (Version None)
Quarter: 2007Q4

REPORT INFORMATION
  Report Type: 
  Country: None (occurrence: None)
  Receive Date: 20071227
  Receipt Date: 20071227
  Transmission Date: 20080405
  Serious: Yes (Other)
  Sender: FDA-Public Use
  Company Number: None

PATIENT
  Age: 61 Year
  Sex: Male
  Weight: 121.564 kg

DRUGS (3)
  1. ZOLOFT [Suspect]
     Indication: DISEASE RECURRENCE
     Dosage: ZOLOFT 175 MG PO DAILY
     Route: 048
     Dates: start: 20071026, end: 20071029
  2. ZOLOFT [Suspect]
     Indication: MAJOR DEPRESSION
     Dosage: ZOLOFT 175 MG PO DAILY
     Route: 048
     Dates: start: 20071026, end: 20071029
  3. ZOLOFT [Suspect]

REACTIONS (1)
  - HALLUCINATION, AUDITORY [None]
